FAERS Safety Report 9288945 (Version 1)
Quarter: 2013Q2

REPORT INFORMATION
  Report Type: Spontaneous
  Country: FR (occurrence: FR)
  Receive Date: 20130514
  Receipt Date: 20130514
  Transmission Date: 20140414
  Serious: Yes (Hospitalization)
  Sender: FDA-Public Use
  Company Number: FR-GLAXOSMITHKLINE-B0889505A

PATIENT
  Age: 44 Year
  Sex: Female

DRUGS (14)
  1. LAMICTAL [Suspect]
     Indication: EPILEPSY
     Dosage: 100MG TWICE PER DAY
     Route: 065
  2. TERCIAN [Suspect]
     Indication: PRODUCT USED FOR UNKNOWN INDICATION
     Dosage: 15DROP PER DAY
     Route: 065
  3. DEPAKINE CHRONO [Suspect]
     Indication: PRODUCT USED FOR UNKNOWN INDICATION
     Dosage: 500MG TWICE PER DAY
     Route: 048
  4. VENTOLINE [Concomitant]
     Route: 065
  5. PAROXETIN [Concomitant]
     Dosage: 20MG THREE TIMES PER DAY
     Route: 065
  6. TEMESTA [Concomitant]
     Dosage: 2.5MG FOUR TIMES PER DAY
     Route: 065
  7. TAHOR [Concomitant]
     Dosage: 10MG PER DAY
     Route: 065
  8. LANZOR [Concomitant]
     Dosage: 30MG TWICE PER DAY
     Route: 065
  9. FUROSEMIDE [Concomitant]
     Dosage: 40MG PER DAY
     Route: 065
  10. DIFFU K [Concomitant]
     Route: 065
  11. PRADAXA [Concomitant]
     Dosage: 150MG TWICE PER DAY
     Route: 065
  12. TRANSIPEG [Concomitant]
     Route: 065
  13. SPASFON [Concomitant]
     Dosage: 3UNIT PER DAY
     Route: 065
  14. METEOXANE [Concomitant]
     Dosage: 2UNIT THREE TIMES PER DAY
     Route: 065

REACTIONS (1)
  - Hypogammaglobulinaemia [Unknown]
